FAERS Safety Report 8448293-8 (Version None)
Quarter: 2012Q2

REPORT INFORMATION
  Report Type: 
  Country: None (occurrence: None)
  Receive Date: 20120619
  Receipt Date: 20120612
  Transmission Date: 20120825
  Serious: Yes (Other)
  Sender: FDA-Public Use
  Company Number: FR-FRI-1000029349

PATIENT
  Age: 65 Year
  Sex: Female
  Weight: 59 kg

DRUGS (5)
  1. MILNACIPRAN [Suspect]
     Dosage: 125 MG
     Route: 048
     Dates: start: 20120101, end: 20120417
  2. IRBESARTAN [Concomitant]
     Indication: HYPERTENSION
     Dosage: 1 DF
     Dates: start: 20000101
  3. MILNACIPRAN [Suspect]
     Indication: DEPRESSION
     Dosage: 150 MG
     Route: 048
     Dates: start: 20001001, end: 20120101
  4. LEVOTHYROXINE SODIUM [Concomitant]
  5. MILNACIPRAN [Suspect]
     Dosage: 100 MG
     Route: 048
     Dates: start: 20120418

REACTIONS (2)
  - OVERDOSE [None]
  - RENAL FAILURE [None]
